FAERS Safety Report 8319711-0 (Version None)
Quarter: 2012Q2

REPORT INFORMATION
  Report Type: 
  Country: None (occurrence: None)
  Receive Date: 20120427
  Receipt Date: 20120418
  Transmission Date: 20120825
  Serious: Yes (Other)
  Sender: FDA-Public Use
  Company Number: US-ASTRAZENECA-2011SE62707

PATIENT
  Age: 85 Year
  Sex: Female

DRUGS (3)
  1. PRILOSEC [Suspect]
     Route: 048
  2. NEXIUM [Suspect]
     Indication: GASTROOESOPHAGEAL REFLUX DISEASE
     Route: 048
  3. CRESTOR [Suspect]
     Route: 048

REACTIONS (6)
  - INJURY [None]
  - PAIN [None]
  - SPEECH DISORDER [None]
  - DEAFNESS [None]
  - INTENTIONAL DRUG MISUSE [None]
  - HEARING IMPAIRED [None]
